FAERS Safety Report 4363179-6 (Version None)
Quarter: 2004Q2

REPORT INFORMATION
  Report Type: 
  Country: None (occurrence: None)
  Receive Date: 20040524
  Receipt Date: 20031016
  Transmission Date: 20050107
  Serious: No
  Sender: FDA-Public Use
  Company Number: US-GLAXOSMITHKLINE-A0430610A

PATIENT
  Age: 76 Year
  Sex: Male
  Weight: 105.9 kg

DRUGS (6)
  1. BACTROBAN [Suspect]
     Indication: ILL-DEFINED DISORDER
     Route: 061
     Dates: start: 20031029, end: 20031029
  2. PLENDIL [Concomitant]
  3. DETROL [Concomitant]
  4. ARICEPT [Concomitant]
  5. LASIX [Concomitant]
  6. RANITIDINE [Concomitant]

REACTIONS (3)
  - BURNING SENSATION [None]
  - ERYTHEMA [None]
  - WOUND SECRETION [None]
